FAERS Safety Report 20303220 (Version 8)
Quarter: 2024Q2

REPORT INFORMATION
  Report Type: Spontaneous
  Country: US (occurrence: US)
  Receive Date: 20220106
  Receipt Date: 20240401
  Transmission Date: 20240715
  Serious: Yes (Other)
  Sender: FDA-Public Use
  Company Number: US-PFIZER INC-202101850248

PATIENT
  Age: 35 Year
  Sex: Male
  Weight: 68 kg

DRUGS (5)
  1. XYNTHA [Suspect]
     Active Substance: ANTIHEMOPHILIC FACTOR, HUMAN RECOMBINANT RESIDUES 743-1636 DELETED
     Indication: Haemorrhage
     Dosage: 25 UNITS/KG IV SLOW PUSH DAILY X3 DAYS, THEN EVERY OTHER DAY X5 DAYS
     Route: 042
  2. XYNTHA [Suspect]
     Active Substance: ANTIHEMOPHILIC FACTOR, HUMAN RECOMBINANT RESIDUES 743-1636 DELETED
     Dosage: 25 UNITS/KG = 1800 UNITS IV SLOW PUSH ONCE EVERY 48 HOURS FOR ONE WEEK 48 HOURS FOR ONE WEEK
  3. XYNTHA [Suspect]
     Active Substance: ANTIHEMOPHILIC FACTOR, HUMAN RECOMBINANT RESIDUES 743-1636 DELETED
     Dosage: 20-25 UNITS/KG (1454-1820 UNITS PER DOSE)
     Route: 042
  4. XYNTHA [Suspect]
     Active Substance: ANTIHEMOPHILIC FACTOR, HUMAN RECOMBINANT RESIDUES 743-1636 DELETED
     Dosage: 40-50 U/KG (2908-3635 U PER DOSE); THEN 20-25 (1380-1725 U PER DOSE) U/KG AT 24 HRS+72 HRS
     Route: 042
  5. XYNTHA [Suspect]
     Active Substance: ANTIHEMOPHILIC FACTOR, HUMAN RECOMBINANT RESIDUES 743-1636 DELETED
     Dosage: 40-50 U/KG (2908-3635 U PER DOSE) AT TIME OF BLEED
     Route: 042

REACTIONS (2)
  - Injury [Unknown]
  - Off label use [Unknown]

NARRATIVE: CASE EVENT DATE: 20211218
